FAERS Safety Report 7754640-2 (Version None)
Quarter: 2011Q3

REPORT INFORMATION
  Report Type: 
  Country: None (occurrence: None)
  Receive Date: 20110915
  Receipt Date: 20110707
  Transmission Date: 20111222
  Serious: No
  Sender: FDA-Public Use
  Company Number: US-ALLERGAN-1109187US

PATIENT
  Age: 71 Year
  Sex: Female

DRUGS (1)
  1. LUMIGAN [Suspect]
     Indication: INTRAOCULAR PRESSURE INCREASED
     Dosage: 2 GTT, SINGLE
     Route: 047
     Dates: start: 20110705, end: 20110705

REACTIONS (7)
  - EYELID OEDEMA [None]
  - BURNING SENSATION [None]
  - NASAL DISCOMFORT [None]
  - OCULAR HYPERAEMIA [None]
  - EYE IRRITATION [None]
  - EYE PRURITUS [None]
  - THROAT IRRITATION [None]
